FAERS Safety Report 23017995 (Version 5)
Quarter: 2023Q4

REPORT INFORMATION
  Report Type: Report from Study
  Country: US (occurrence: US)
  Receive Date: 20231003
  Receipt Date: 20231226
  Transmission Date: 20240109
  Serious: Yes (Other)
  Sender: FDA-Public Use
  Company Number: US-ABBVIE-5396491

PATIENT
  Sex: Female

DRUGS (2)
  1. HUMIRA [Suspect]
     Active Substance: ADALIMUMAB
     Indication: Rheumatoid arthritis
     Dosage: FORM STRENGTH: 40MG
     Route: 058
     Dates: start: 2023
  2. HUMIRA [Suspect]
     Active Substance: ADALIMUMAB

REACTIONS (4)
  - Lung neoplasm malignant [Not Recovered/Not Resolved]
  - Rheumatoid arthritis [Unknown]
  - Brain neoplasm malignant [Unknown]
  - Cardiac pacemaker insertion [Unknown]

NARRATIVE: CASE EVENT DATE: 20230101
